FAERS Safety Report 14601910 (Version 1)
Quarter: 2018Q1

REPORT INFORMATION
  Report Type: Spontaneous
  Country: DE (occurrence: DE)
  Receive Date: 20180306
  Receipt Date: 20180306
  Transmission Date: 20180509
  Serious: Yes (Death, Hospitalization)
  Sender: FDA-Public Use
  Company Number: DE-CIPLA LTD.-2018DE08322

PATIENT

DRUGS (1)
  1. GEMCITABINE [Suspect]
     Active Substance: GEMCITABINE\GEMCITABINE HYDROCHLORIDE
     Indication: PRODUCT USED FOR UNKNOWN INDICATION
     Dosage: 1300 (UNITS NOT SPECIFIED)
     Route: 065
     Dates: start: 20180115, end: 20180115

REACTIONS (2)
  - Pneumonia [Fatal]
  - Platelet count decreased [Fatal]
